FAERS Safety Report 5691851-4 (Version None)
Quarter: 2008Q2

REPORT INFORMATION
  Report Type: 
  Country: None (occurrence: None)
  Receive Date: 20080401
  Receipt Date: 20080401
  Transmission Date: 20081010
  Serious: No
  Sender: FDA-Public Use
  Company Number: None

PATIENT
  Age: 60 Year
  Sex: Female
  Weight: 56.6996 kg

DRUGS (2)
  1. FOSAMAX [Suspect]
     Indication: OSTEOPOROSIS
     Dosage: 60 MG WEEKLY PO 60 MG TRI-WEEKLY PO
     Route: 048
     Dates: start: 20001129, end: 20021129
  2. FOSAMAX [Suspect]
     Indication: OSTEOPOROSIS
     Dosage: 60 MG WEEKLY PO 60 MG TRI-WEEKLY PO
     Route: 048
     Dates: start: 20040330, end: 20080330

REACTIONS (3)
  - MIGRAINE [None]
  - OESOPHAGEAL DISCOMFORT [None]
  - VOMITING [None]
